FAERS Safety Report 6850328-0 (Version None)
Quarter: 2010Q3

REPORT INFORMATION
  Report Type: 
  Country: None (occurrence: None)
  Receive Date: 20100716
  Receipt Date: 20071011
  Transmission Date: 20110219
  Serious: No
  Sender: FDA-Public Use
  Company Number: US-PFIZER INC-2007086278

PATIENT
  Sex: Female
  Weight: 79.545 kg

DRUGS (4)
  1. CHANTIX [Suspect]
     Indication: SMOKING CESSATION THERAPY
     Dates: start: 20070930, end: 20071001
  2. SYNTHROID [Concomitant]
     Indication: THYROID DISORDER
  3. TOPROL-XL [Concomitant]
     Indication: ANGINA PECTORIS
  4. ZOCOR [Concomitant]
     Indication: BLOOD CHOLESTEROL

REACTIONS (4)
  - ABDOMINAL DISCOMFORT [None]
  - ANXIETY [None]
  - FEELING JITTERY [None]
  - INSOMNIA [None]
